FAERS Safety Report 7367068-4 (Version None)
Quarter: 2011Q1

REPORT INFORMATION
  Report Type: 
  Country: None (occurrence: None)
  Receive Date: 20110322
  Receipt Date: 20110309
  Transmission Date: 20110831
  Serious: Yes (Other)
  Sender: FDA-Public Use
  Company Number: DE-JNJFOC-20110205883

PATIENT
  Sex: Male
  Weight: 70 kg

DRUGS (3)
  1. BEROTEC [Concomitant]
  2. TILIDINE [Concomitant]
  3. PALEXIA RETARD [Suspect]
     Indication: PAIN
     Route: 065

REACTIONS (2)
  - WITHDRAWAL SYNDROME [None]
  - DEPRESSION [None]
